FAERS Safety Report 9189945 (Version 3)
Quarter: 2013Q4

REPORT INFORMATION
  Report Type: Spontaneous
  Country: US (occurrence: None)
  Receive Date: 20120703
  Receipt Date: 20131226
  Transmission Date: 20140711
  Serious: Yes (Other)
  Sender: FDA-Public Use
  Company Number: PHEH2012US009837

PATIENT
  Age: 43 Year
  Sex: Female

DRUGS (15)
  1. GILENYA [Suspect]
     Indication: RELAPSING-REMITTING MULTIPLE SCLEROSIS
     Route: 048
     Dates: start: 20100121
  2. ZANTAC (RANITIDINE HYDROCHLORIDE) [Concomitant]
     Indication: RELAPSING-REMITTING MULTIPLE SCLEROSIS
     Dosage: 0.5MG QD, ORAL.
     Dates: start: 20100121
  3. FLONASE [Concomitant]
  4. NUVIGIL [Concomitant]
  5. ZYRTEC [Concomitant]
  6. BACLOFEN (BACLOFEN) (BACLOFEN) [Concomitant]
  7. XANAX (ALPRAZOLAM) [Concomitant]
  8. VIVELLE [Concomitant]
  9. VIMPAT (LACOSAMIDE) [Concomitant]
  10. TREXIMET [Concomitant]
  11. TORADOL (KETOROLAC TROMETHAMINE) [Concomitant]
  12. SUDAFED [Concomitant]
  13. PSEUDOEPHEDRINE [Concomitant]
  14. MVI [Concomitant]
  15. FLUTICASONE (FLUTICASONE) [Suspect]

REACTIONS (6)
  - Selective IgG subclass deficiency [None]
  - Influenza [None]
  - Influenza [None]
  - Sinus congestion [None]
  - White blood cell count decreased [None]
  - Lymphocyte count decreased [None]
